FAERS Safety Report 7628424-X (Version None)
Quarter: 2011Q3

REPORT INFORMATION
  Report Type: 
  Country: None (occurrence: None)
  Receive Date: 20110722
  Receipt Date: 20110718
  Transmission Date: 20111222
  Serious: No
  Sender: FDA-Public Use
  Company Number: US-PFIZER INC-2011156494

PATIENT
  Sex: Female

DRUGS (3)
  1. ATENOLOL [Concomitant]
     Dosage: UNK
  2. NIFEDIPINE [Suspect]
     Indication: CARDIAC DISORDER
     Dosage: 60 MG, 1X/DAY
     Route: 048
  3. LISINOPRIL [Concomitant]
     Dosage: UNK

REACTIONS (1)
  - DYSGEUSIA [None]
